FAERS Safety Report 21226465 (Version 1)
Quarter: 2022Q3

REPORT INFORMATION
  Report Type: Spontaneous
  Country: US (occurrence: US)
  Receive Date: 20220818
  Receipt Date: 20220818
  Transmission Date: 20221026
  Serious: No
  Sender: FDA-Public Use
  Company Number: US-CIPLA LTD.-2021US07203

PATIENT
  Age: 66 Year
  Sex: Male

DRUGS (1)
  1. DICLOFENAC [Suspect]
     Active Substance: DICLOFENAC
     Indication: Arthritis
     Dosage: UNK
     Route: 065
     Dates: start: 202109

REACTIONS (5)
  - Off label use [Unknown]
  - Product use in unapproved indication [Unknown]
  - Dyspnoea [Unknown]
  - Fatigue [Unknown]
  - Nasopharyngitis [Unknown]
